FAERS Safety Report 6422139-1 (Version None)
Quarter: 2009Q4

REPORT INFORMATION
  Report Type: 
  Country: None (occurrence: None)
  Receive Date: 20091030
  Receipt Date: 20091029
  Transmission Date: 20100525
  Serious: Yes (Other)
  Sender: FDA-Public Use
  Company Number: TR-ROXANE LABORATORIES, INC.-2009-RO-01112RO

PATIENT
  Age: 24 Year
  Sex: Female

DRUGS (3)
  1. CITALOPRAM [Suspect]
     Indication: GENERALISED ANXIETY DISORDER
     Dosage: 10 MG
  2. CITALOPRAM [Suspect]
     Dosage: 20 MG
  3. BUSPIRONE HCL [Concomitant]
     Indication: BRUXISM
     Dosage: 5 MG

REACTIONS (1)
  - BRUXISM [None]
